FAERS Safety Report 6522564-4 (Version None)
Quarter: 2009Q4

REPORT INFORMATION
  Report Type: 
  Country: None (occurrence: None)
  Receive Date: 20091230
  Receipt Date: 20091228
  Transmission Date: 20100525
  Serious: Yes (Life-Threatening)
  Sender: FDA-Public Use
  Company Number: US-B.I. PHARMACEUTICALS,INC./RIDGEFIELD-2009-BP-14909BP

PATIENT

DRUGS (1)
  1. MICARDIS [Suspect]

REACTIONS (1)
  - HEART RATE DECREASED [None]
